FAERS Safety Report 5738486-2 (Version None)
Quarter: 2008Q2

REPORT INFORMATION
  Report Type: 
  Country: None (occurrence: None)
  Receive Date: 20080513
  Receipt Date: 20080428
  Transmission Date: 20081010
  Serious: Yes (Hospitalization)
  Sender: FDA-Public Use
  Company Number: 233647J08USA

PATIENT
  Age: 58 Year
  Sex: Female
  Weight: 108.8633 kg

DRUGS (4)
  1. REBIF [Suspect]
     Indication: MULTIPLE SCLEROSIS
     Dosage: 44 MCG, 3 IN 1 WEEKS, SUBCUTANEOUS
     Route: 058
     Dates: start: 20051008
  2. ELAVIL [Concomitant]
  3. XANAX [Concomitant]
  4. DIOVAN [Concomitant]

REACTIONS (4)
  - ERYTHEMA [None]
  - PYREXIA [None]
  - SKIN WARM [None]
  - WOUND NECROSIS [None]
